FAERS Safety Report 20714542 (Version 1)
Quarter: 2022Q2

REPORT INFORMATION
  Report Type: Spontaneous
  Country: GB (occurrence: GB)
  Receive Date: 20220415
  Receipt Date: 20220415
  Transmission Date: 20220721
  Serious: Yes (Other)
  Sender: FDA-Public Use
  Company Number: GB-BIOVITRUM-2022GB05056

PATIENT
  Age: 52 Year
  Sex: Male

DRUGS (10)
  1. ANAKINRA [Suspect]
     Active Substance: ANAKINRA
     Indication: COVID-19
     Route: 042
  2. ANAKINRA [Suspect]
     Active Substance: ANAKINRA
     Indication: Haemophagocytic lymphohistiocytosis
  3. AMBISOME [Concomitant]
     Active Substance: AMPHOTERICIN B
  4. noradrenaline, [Concomitant]
  5. VASOPRESSIN [Concomitant]
     Active Substance: VASOPRESSIN
  6. METARAMINOL [Concomitant]
     Active Substance: METARAMINOL
  7. MEROPENEM [Concomitant]
     Active Substance: MEROPENEM
  8. MILRINONE [Concomitant]
     Active Substance: MILRINONE
  9. DIGOXIN [Concomitant]
     Active Substance: DIGOXIN
  10. andiulafungin [Concomitant]

REACTIONS (3)
  - Atrial fibrillation [Unknown]
  - Myopathy [Unknown]
  - Off label use [Unknown]
